FAERS Safety Report 25928432 (Version 1)
Quarter: 2025Q4

REPORT INFORMATION
  Report Type: Spontaneous
  Country: EU (occurrence: EU)
  Receive Date: 20251016
  Receipt Date: 20251016
  Transmission Date: 20260117
  Serious: Yes (Hospitalization)
  Sender: MERCK SHARP & DOHME LLC
  Company Number: EU-DCGMA-25205862

PATIENT
  Age: 84 Year
  Sex: Female

DRUGS (7)
  1. KEYTRUDA [Suspect]
     Active Substance: PEMBROLIZUMAB
     Indication: Neoplasm malignant
     Route: 042
     Dates: start: 20250708, end: 20250730
  2. KEYTRUDA [Suspect]
     Active Substance: PEMBROLIZUMAB
     Indication: Neoplasm malignant
     Route: 042
     Dates: start: 20250708, end: 20250730
  3. PACLITAXEL [Concomitant]
     Active Substance: PACLITAXEL
     Indication: Breast cancer metastatic
     Dosage: ANWENDUNG: 08.07.25; 15.07.25; 22.07.25; 30.07.25
     Route: 042
     Dates: end: 20250730
  4. GRANISETRON [Concomitant]
     Active Substance: GRANISETRON
     Indication: Adjuvant therapy
     Dosage: ANWENDUNG: 08.07.25; 15.07.25; 22.07.25
     Route: 042
  5. CLEMASTINE [Concomitant]
     Active Substance: CLEMASTINE
     Indication: Adjuvant therapy
     Dosage: ANWENDUNG: 08.07.25; 30.07.25
     Route: 042
  6. ACETAMINOPHEN [Concomitant]
     Active Substance: ACETAMINOPHEN
     Indication: Adjuvant therapy
     Dosage: ANWENDUNG: 08.07.25; 30.07.25
     Route: 048
  7. LEVOTHYROXINE [Concomitant]
     Active Substance: LEVOTHYROXINE
     Indication: Hypothyroidism
     Route: 048

REACTIONS (7)
  - Immune-mediated myocarditis [Not Recovered/Not Resolved]
  - Dyspnoea [Not Recovered/Not Resolved]
  - Troponin increased [Not Recovered/Not Resolved]
  - Hypercalcaemia [Not Recovered/Not Resolved]
  - Dizziness [Not Recovered/Not Resolved]
  - Malaise [Not Recovered/Not Resolved]
  - Chest pain [Not Recovered/Not Resolved]

NARRATIVE: CASE EVENT DATE: 20250807
